FAERS Safety Report 7355603-1 (Version None)
Quarter: 2011Q1

REPORT INFORMATION
  Report Type: 
  Country: None (occurrence: None)
  Receive Date: 20110316
  Receipt Date: 20110308
  Transmission Date: 20110831
  Serious: Yes (Other)
  Sender: FDA-Public Use
  Company Number: B0706024A

PATIENT
  Sex: Male

DRUGS (10)
  1. XATRAL [Suspect]
     Route: 048
     Dates: start: 20110111
  2. KARDEGIC [Concomitant]
     Route: 048
     Dates: start: 20101231
  3. AUGMENTIN '125' [Suspect]
     Dosage: 1G THREE TIMES PER DAY
     Route: 048
     Dates: start: 20110107, end: 20110112
  4. COLCHICINE [Suspect]
     Dosage: 1MG PER DAY
     Route: 048
     Dates: start: 20110109, end: 20110124
  5. ATARAX [Suspect]
     Dosage: 25MG PER DAY
     Route: 048
     Dates: start: 20101231, end: 20110111
  6. CALCIPARINE [Suspect]
     Dosage: 5000IU TWICE PER DAY
     Route: 058
     Dates: start: 20101231, end: 20110110
  7. SELOKEN [Suspect]
     Dosage: 25MG TWICE PER DAY
     Route: 048
     Dates: end: 20110118
  8. AMIODARONE HCL [Concomitant]
     Route: 048
  9. SPASFON [Suspect]
     Dosage: 1U THREE TIMES PER DAY
     Route: 048
     Dates: start: 20110112
  10. SERESTA [Concomitant]
     Route: 048
     Dates: start: 20110111

REACTIONS (1)
  - CYTOLYTIC HEPATITIS [None]
